FAERS Safety Report 14454499 (Version 1)
Quarter: 2018Q1

REPORT INFORMATION
  Report Type: Spontaneous
  Country: US (occurrence: US)
  Receive Date: 20180129
  Receipt Date: 20180129
  Transmission Date: 20180509
  Serious: No
  Sender: FDA-Public Use
  Company Number: US-BAYER-2018-014541

PATIENT
  Age: 72 Year
  Sex: Female
  Weight: 54 kg

DRUGS (5)
  1. MELATONIN [Concomitant]
     Active Substance: MELATONIN
  2. MIRALAX [Suspect]
     Active Substance: POLYETHYLENE GLYCOL 3350
     Indication: GASTROINTESTINAL DISORDER
     Dosage: 1 1/2-2 1/4 DOSES DAILY DOSE
     Route: 048
  3. PRIMERA [Concomitant]
     Active Substance: UNSPECIFIED INGREDIENT
  4. MILK OF MAGNESIA ORIGINAL [Suspect]
     Active Substance: MAGNESIUM HYDROXIDE
     Indication: GASTROINTESTINAL DISORDER
     Dosage: 60 ML, QD
     Route: 048
     Dates: start: 201801, end: 201801
  5. LINZESS [Concomitant]
     Active Substance: LINACLOTIDE

REACTIONS (4)
  - Product use issue [Unknown]
  - Drug effect delayed [Unknown]
  - Drug effect incomplete [Unknown]
  - Drug prescribing error [Unknown]

NARRATIVE: CASE EVENT DATE: 201801
